FAERS Safety Report 6153349-9 (Version None)
Quarter: 2009Q2

REPORT INFORMATION
  Report Type: 
  Country: None (occurrence: None)
  Receive Date: 20090409
  Receipt Date: 20090409
  Transmission Date: 20091009
  Serious: No
  Sender: FDA-Public Use
  Company Number: None

PATIENT
  Age: 72 Year
  Sex: Male
  Weight: 113.3993 kg

DRUGS (2)
  1. PARNATE [Suspect]
     Indication: MAJOR DEPRESSION
     Dosage: 10MG  5 TABS BID PO
     Route: 048
     Dates: start: 20081101, end: 20090301
  2. PARNATE [Suspect]
     Indication: PSYCHOTIC DISORDER
     Dosage: 10MG  5 TABS BID PO
     Route: 048
     Dates: start: 20081101, end: 20090301

REACTIONS (4)
  - CONDITION AGGRAVATED [None]
  - DEPRESSION [None]
  - DRUG INEFFECTIVE [None]
  - THERAPEUTIC RESPONSE UNEXPECTED WITH DRUG SUBSTITUTION [None]
